FAERS Safety Report 16055360 (Version 1)
Quarter: 2019Q1

REPORT INFORMATION
  Report Type: Report from Study
  Country: CN (occurrence: CN)
  Receive Date: 20190311
  Receipt Date: 20190311
  Transmission Date: 20190418
  Serious: Yes (Other)
  Sender: FDA-Public Use
  Company Number: CN-ROCHE-2274381

PATIENT

DRUGS (3)
  1. VINORELBINE [Suspect]
     Active Substance: VINORELBINE\VINORELBINE TARTRATE
     Indication: BREAST CANCER METASTATIC
     Dosage: ON DAY 1ST AND DAY 8TH
     Route: 041
  2. TAXOL [Suspect]
     Active Substance: PACLITAXEL
     Indication: BREAST CANCER METASTATIC
     Route: 041
  3. CAPECITABINE. [Suspect]
     Active Substance: CAPECITABINE
     Indication: BREAST CANCER METASTATIC
     Route: 048

REACTIONS (8)
  - Gastrointestinal disorder [Unknown]
  - Anaemia [Unknown]
  - Diarrhoea [Unknown]
  - Transaminases increased [Unknown]
  - Palmar-plantar erythrodysaesthesia syndrome [Unknown]
  - Cardiotoxicity [Unknown]
  - Leukopenia [Unknown]
  - Vomiting [Unknown]
